FAERS Safety Report 9530285 (Version 1)
Quarter: 2013Q3

REPORT INFORMATION
  Report Type: Spontaneous
  Country: GR (occurrence: GR)
  Receive Date: 20130917
  Receipt Date: 20130917
  Transmission Date: 20140515
  Serious: Yes (Hospitalization, Other)
  Sender: FDA-Public Use
  Company Number: PHHY2013GR100064

PATIENT
  Age: 13 Year
  Sex: Female

DRUGS (2)
  1. DEFERASIROX [Suspect]
     Indication: SICKLE CELL ANAEMIA
     Dosage: UNK UKN, UNK
  2. HYDROXYUREA [Suspect]
     Dosage: UNK UKN, UNK

REACTIONS (15)
  - Posterior reversible encephalopathy syndrome [Recovering/Resolving]
  - Partial seizures with secondary generalisation [Recovering/Resolving]
  - Blood brain barrier defect [Recovering/Resolving]
  - Central nervous system lesion [Recovering/Resolving]
  - Headache [Recovering/Resolving]
  - Jaundice [Recovering/Resolving]
  - Hepatic enzyme increased [Recovering/Resolving]
  - Blood bilirubin increased [Recovering/Resolving]
  - Arrhythmia [Recovering/Resolving]
  - Blood pressure systolic increased [Recovering/Resolving]
  - Thrombocytopenia [Recovering/Resolving]
  - Haemoglobin decreased [Recovering/Resolving]
  - Reticulocyte percentage decreased [Recovering/Resolving]
  - Fatigue [Recovering/Resolving]
  - Blood urea increased [Recovering/Resolving]
